FAERS Safety Report 13655070 (Version 1)
Quarter: 2017Q2

REPORT INFORMATION
  Report Type: Spontaneous
  Country: GB (occurrence: GB)
  Receive Date: 20170615
  Receipt Date: 20170615
  Transmission Date: 20170830
  Serious: Yes (Other)
  Sender: FDA-Public Use
  Company Number: GB-SUN PHARMACEUTICAL INDUSTRIES LTD-2017RR-143045

PATIENT
  Age: 47 Year
  Sex: Female

DRUGS (2)
  1. ATORVASTATIN [Suspect]
     Active Substance: ATORVASTATIN
     Dosage: 10 MG
     Route: 065
  2. ATORVASTATIN [Suspect]
     Active Substance: ATORVASTATIN
     Indication: PRODUCT USED FOR UNKNOWN INDICATION
     Dosage: 80 MG, START DATE: 10-OCT-2013
     Route: 065
     Dates: start: 20131010, end: 20131213

REACTIONS (6)
  - Angina pectoris [Unknown]
  - Drug intolerance [Unknown]
  - Malaise [Unknown]
  - Psychological trauma [Unknown]
  - Stenosis [Unknown]
  - Bone pain [Unknown]

NARRATIVE: CASE EVENT DATE: 20130930
